FAERS Safety Report 6408722-8 (Version None)
Quarter: 2009Q4

REPORT INFORMATION
  Report Type: 
  Country: None (occurrence: None)
  Receive Date: 20091019
  Receipt Date: 20091006
  Transmission Date: 20100525
  Serious: Yes (Hospitalization)
  Sender: FDA-Public Use
  Company Number: 2009AL006519

PATIENT
  Sex: Male

DRUGS (6)
  1. RAMIPRIL      CAPSULES(AELLC) [Suspect]
     Indication: HYPERTENSION
     Dosage: 5 MG;PO
     Route: 048
  2. ATENOLOL [Concomitant]
  3. SEROQUEL [Concomitant]
  4. ACETYLSALICYLIC ACID [Concomitant]
  5. FLUOXETINE [Concomitant]
  6. ACETAMINOPHEN [Concomitant]

REACTIONS (6)
  - HYPERTENSION [None]
  - HYPOTENSION [None]
  - INCORRECT DOSE ADMINISTERED [None]
  - MEDICATION ERROR [None]
  - OVERDOSE [None]
  - SYNCOPE [None]
